FAERS Safety Report 5981569-2 (Version None)
Quarter: 2008Q4

REPORT INFORMATION
  Report Type: 
  Country: None (occurrence: None)
  Receive Date: 20081202
  Receipt Date: 20081120
  Transmission Date: 20090506
  Serious: Yes (Other)
  Sender: FDA-Public Use
  Company Number: JPI-P-005467

PATIENT
  Age: 47 Year
  Sex: Female
  Weight: 48.5349 kg

DRUGS (12)
  1. XYREM [Suspect]
     Indication: BACK PAIN
     Dosage: 6 GM (3 GM, 2 IN 1 D),ORAL;   6 GM (6 GM, 1 IN 1 D), ORAL;  4GM (4 GM, 1 IN 1 D), ORAL
     Route: 048
     Dates: start: 20050914
  2. XYREM [Suspect]
     Indication: INSOMNIA
     Dosage: 6 GM (3 GM, 2 IN 1 D),ORAL;   6 GM (6 GM, 1 IN 1 D), ORAL;  4GM (4 GM, 1 IN 1 D), ORAL
     Route: 048
     Dates: start: 20050914
  3. XYREM [Suspect]
     Indication: BACK PAIN
     Dosage: 6 GM (3 GM, 2 IN 1 D),ORAL;   6 GM (6 GM, 1 IN 1 D), ORAL;  4GM (4 GM, 1 IN 1 D), ORAL
     Route: 048
     Dates: start: 20081008
  4. XYREM [Suspect]
     Indication: INSOMNIA
     Dosage: 6 GM (3 GM, 2 IN 1 D),ORAL;   6 GM (6 GM, 1 IN 1 D), ORAL;  4GM (4 GM, 1 IN 1 D), ORAL
     Route: 048
     Dates: start: 20081008
  5. XYREM [Suspect]
     Indication: BACK PAIN
     Dosage: 6 GM (3 GM, 2 IN 1 D),ORAL;   6 GM (6 GM, 1 IN 1 D), ORAL;  4GM (4 GM, 1 IN 1 D), ORAL
     Route: 048
     Dates: start: 20081008
  6. XYREM [Suspect]
     Indication: INSOMNIA
     Dosage: 6 GM (3 GM, 2 IN 1 D),ORAL;   6 GM (6 GM, 1 IN 1 D), ORAL;  4GM (4 GM, 1 IN 1 D), ORAL
     Route: 048
     Dates: start: 20081008
  7. UNSPECIFIED ANTIHYPERTENSIVE MEDICATION [Suspect]
     Indication: HYPERTENSION
  8. VARENICLINE [Concomitant]
  9. MODAFINIL [Concomitant]
  10. CLONAZEPAM [Concomitant]
  11. DULOXETINE [Concomitant]
  12. AMLODIPINE [Concomitant]

REACTIONS (6)
  - BLOOD ALDOSTERONE INCREASED [None]
  - BLOOD PARATHYROID HORMONE INCREASED [None]
  - BLOOD POTASSIUM DECREASED [None]
  - CHRONIC OBSTRUCTIVE PULMONARY DISEASE [None]
  - RENAL IMPAIRMENT [None]
  - THYROID FUNCTION TEST ABNORMAL [None]
